FAERS Safety Report 24872837 (Version 1)
Quarter: 2025Q1

REPORT INFORMATION
  Report Type: Spontaneous
  Country: FR (occurrence: FR)
  Receive Date: 20250122
  Receipt Date: 20250122
  Transmission Date: 20250409
  Serious: Yes (Hospitalization, Other)
  Sender: ROCHE
  Company Number: None

PATIENT
  Age: 38 Year
  Sex: Male
  Weight: 62 kg

DRUGS (17)
  1. VALGANCICLOVIR [Suspect]
     Active Substance: VALGANCICLOVIR
     Indication: Cytomegalovirus infection reactivation
     Route: 065
     Dates: start: 201403
  2. SODIUM BICARBONATE [Suspect]
     Active Substance: SODIUM BICARBONATE
     Indication: Product used for unknown indication
     Route: 065
     Dates: start: 20240426
  3. CHOLECALCIFEROL [Suspect]
     Active Substance: CHOLECALCIFEROL
     Indication: Product used for unknown indication
     Route: 065
     Dates: start: 20240426
  4. ACETAMINOPHEN [Suspect]
     Active Substance: ACETAMINOPHEN
     Indication: Product used for unknown indication
     Route: 065
     Dates: start: 20240426
  5. XANAX [Suspect]
     Active Substance: ALPRAZOLAM
     Indication: Product used for unknown indication
     Route: 065
     Dates: start: 20240426
  6. TACROLIMUS [Suspect]
     Active Substance: TACROLIMUS
     Indication: Product used for unknown indication
     Route: 065
     Dates: start: 202407
  7. CELLCEPT [Interacting]
     Active Substance: MYCOPHENOLATE MOFETIL
     Indication: Renal transplant
     Route: 048
     Dates: start: 20130901, end: 20240808
  8. CELLCEPT [Interacting]
     Active Substance: MYCOPHENOLATE MOFETIL
     Route: 048
     Dates: start: 20240805
  9. CELLCEPT [Interacting]
     Active Substance: MYCOPHENOLATE MOFETIL
     Route: 048
     Dates: start: 20240426
  10. PREDNISONE [Interacting]
     Active Substance: PREDNISONE
     Indication: Renal transplant
     Route: 048
     Dates: start: 20130901
  11. PREDNISONE [Interacting]
     Active Substance: PREDNISONE
     Route: 048
     Dates: start: 20240426
  12. PREDNISONE [Interacting]
     Active Substance: PREDNISONE
     Route: 048
     Dates: start: 20240808
  13. TACROLIMUS [Interacting]
     Active Substance: TACROLIMUS
     Indication: Renal transplant
     Route: 048
     Dates: start: 20130901
  14. TACROLIMUS [Interacting]
     Active Substance: TACROLIMUS
     Route: 048
     Dates: start: 20240426
  15. COLCHICINE [Interacting]
     Active Substance: COLCHICINE
     Indication: Brucellosis
     Route: 048
     Dates: start: 20110103
  16. COLCHICINE [Interacting]
     Active Substance: COLCHICINE
     Dosage: REDUCTION IN COLCHICINE TO 0.5MG/D
     Route: 048
     Dates: start: 202407
  17. COLCHICINE [Interacting]
     Active Substance: COLCHICINE
     Route: 065
     Dates: start: 20240426

REACTIONS (9)
  - Parvovirus B19 infection [Recovered/Resolved]
  - Drug interaction [Recovered/Resolved]
  - Neutropenia [Unknown]
  - Febrile neutropenia [Recovered/Resolved]
  - Urinary tract infection [Unknown]
  - Furuncle [Unknown]
  - COVID-19 [Unknown]
  - Off label use [Unknown]
  - Anaemia [Unknown]

NARRATIVE: CASE EVENT DATE: 20240727
